FAERS Safety Report 4437834-3 (Version None)
Quarter: 2004Q3

REPORT INFORMATION
  Report Type: 
  Country: None (occurrence: None)
  Receive Date: 20040831
  Receipt Date: 20040819
  Transmission Date: 20050211
  Serious: Yes (Hospitalization)
  Sender: FDA-Public Use
  Company Number: 200416367US

PATIENT
  Sex: Female

DRUGS (2)
  1. KETEK [Suspect]
     Dosage: DOSE: UNK
  2. COUMADIN [Suspect]
     Dosage: DOSE: UNK

REACTIONS (2)
  - INTERNATIONAL NORMALISED RATIO INCREASED [None]
  - PROTHROMBIN TIME PROLONGED [None]
